FAERS Safety Report 7453973-7 (Version None)
Quarter: 2011Q2

REPORT INFORMATION
  Report Type: 
  Country: None (occurrence: None)
  Receive Date: 20110502
  Receipt Date: 20110420
  Transmission Date: 20111010
  Serious: Yes (Hospitalization, Other)
  Sender: FDA-Public Use
  Company Number: US-ELI_LILLY_AND_COMPANY-US201104006684

PATIENT
  Sex: Female

DRUGS (16)
  1. FORTEO [Suspect]
     Indication: OSTEOPOROSIS
     Dosage: 20 UG, QD
     Dates: start: 20101001, end: 20110330
  2. OYST-CAL-D [Concomitant]
  3. MORPHINE [Concomitant]
  4. LASIX [Concomitant]
  5. FLONASE [Concomitant]
  6. ATIVAN [Concomitant]
  7. FORTEO [Suspect]
     Dosage: 20 UG, QD
     Dates: start: 20110408
  8. K-DUR [Concomitant]
  9. CELEXA [Concomitant]
  10. ZYLOPRIM [Concomitant]
  11. COMPAZINE [Concomitant]
  12. COZAAR [Concomitant]
  13. LIORESAL [Concomitant]
  14. DULCOLAX [Concomitant]
  15. COLACE [Concomitant]
  16. ASPIRIN [Concomitant]

REACTIONS (5)
  - OEDEMA PERIPHERAL [None]
  - ERYTHEMA [None]
  - ARTHROPATHY [None]
  - ILL-DEFINED DISORDER [None]
  - JOINT SWELLING [None]
